FAERS Safety Report 14953795 (Version 2)
Quarter: 2018Q2

REPORT INFORMATION
  Report Type: Spontaneous
  Country: TW (occurrence: TW)
  Receive Date: 20180530
  Receipt Date: 20180627
  Transmission Date: 20180711
  Serious: Yes (Hospitalization)
  Sender: FDA-Public Use
  Company Number: TW-GILEAD-2018-0340887

PATIENT
  Age: 73 Year
  Sex: Female
  Weight: 45.4 kg

DRUGS (2)
  1. HARVONI [Suspect]
     Active Substance: LEDIPASVIR\SOFOSBUVIR
     Indication: CHRONIC HEPATITIS C
     Dosage: 1 DF, UNK
     Route: 048
     Dates: start: 20180417, end: 20180514
  2. AMIODARON                          /00133101/ [Interacting]
     Active Substance: AMIODARONE
     Indication: CARDIAC DISCOMFORT
     Dosage: UNK
     Route: 065
     Dates: start: 20180505

REACTIONS (3)
  - Drug interaction [Recovered/Resolved]
  - Cardiac discomfort [Unknown]
  - Supraventricular tachycardia [Recovered/Resolved]

NARRATIVE: CASE EVENT DATE: 20180505
